FAERS Safety Report 17483727 (Version 1)
Quarter: 2020Q1

REPORT INFORMATION
  Report Type: Spontaneous
  Country: US (occurrence: US)
  Receive Date: 20200219
  Receipt Date: 20200219
  Transmission Date: 20200409
  Serious: No
  Sender: FDA-Public Use
  Company Number: None

PATIENT
  Age: 33 Year
  Sex: Female

DRUGS (1)
  1. HYDROXYPROG 250MG/ML (1ML) SDV [Suspect]
     Active Substance: HYDROXYPROGESTERONE
     Indication: PREMATURE LABOUR
     Route: 030
     Dates: start: 20200219

REACTIONS (2)
  - Product prescribing error [None]
  - Exposure during pregnancy [None]

NARRATIVE: CASE EVENT DATE: 20200219
